FAERS Safety Report 4719495-9 (Version None)
Quarter: 2005Q3

REPORT INFORMATION
  Report Type: 
  Country: None (occurrence: None)
  Receive Date: 20050721
  Receipt Date: 20050606
  Transmission Date: 20060218
  Serious: Yes (Life-Threatening)
  Sender: FDA-Public Use
  Company Number: JP-BRISTOL-MYERS SQUIBB COMPANY-12995452

PATIENT
  Age: 1 Year
  Sex: Male

DRUGS (3)
  1. PARAPLATIN [Suspect]
     Indication: HEPATOBLASTOMA
     Route: 013
     Dates: start: 20031016, end: 20031016
  2. RANDA [Suspect]
     Indication: HEPATOBLASTOMA
     Route: 042
     Dates: start: 20030602, end: 20031219
  3. THERARUBICIN [Suspect]
     Indication: HEPATOBLASTOMA
     Route: 013
     Dates: start: 20030602, end: 20031219

REACTIONS (2)
  - ACUTE MYELOMONOCYTIC LEUKAEMIA [None]
  - MYELODYSPLASTIC SYNDROME [None]
